FAERS Safety Report 5836710-9 (Version None)
Quarter: 2008Q3

REPORT INFORMATION
  Report Type: 
  Country: None (occurrence: None)
  Receive Date: 20080807
  Receipt Date: 20080729
  Transmission Date: 20090109
  Serious: Yes (Other)
  Sender: FDA-Public Use
  Company Number: NL-TEVA-175264ISR

PATIENT
  Sex: Male
  Weight: 79 kg

DRUGS (4)
  1. SOTALOL HCL [Suspect]
     Dates: start: 20080310
  2. OMEPRAZOLE [Concomitant]
     Dates: start: 20080201
  3. VALSARTAN [Concomitant]
  4. ACENOCOUMAROL [Concomitant]
     Dosage: 1 DF
     Dates: start: 20071228

REACTIONS (1)
  - VITREOUS DISORDER [None]
